FAERS Safety Report 18969380 (Version 1)
Quarter: 2021Q1

REPORT INFORMATION
  Report Type: Spontaneous
  Country: US (occurrence: US)
  Receive Date: 20210304
  Receipt Date: 20210304
  Transmission Date: 20210420
  Serious: No
  Sender: FDA-Public Use
  Company Number: US-SA-2021SA072866

PATIENT
  Sex: Female

DRUGS (1)
  1. AUBAGIO [Suspect]
     Active Substance: TERIFLUNOMIDE
     Indication: BLOOD SODIUM ABNORMAL
     Dosage: DRUG STRUCTURE DOSAGE : NA DRUG INTERVAL DOSAGE : NA

REACTIONS (1)
  - Product use in unapproved indication [Unknown]
